FAERS Safety Report 7940074-4 (Version None)
Quarter: 2011Q4

REPORT INFORMATION
  Report Type: 
  Country: None (occurrence: None)
  Receive Date: 20111125
  Receipt Date: 20111122
  Transmission Date: 20120403
  Serious: Yes (Other)
  Sender: FDA-Public Use
  Company Number: PHHY2011US102240

PATIENT
  Age: 74 Year
  Sex: Male

DRUGS (1)
  1. METOPROLOL TARTRATE [Suspect]
     Dosage: UNK UKN, UNK

REACTIONS (5)
  - EOSINOPHILIA [None]
  - DRUG ERUPTION [None]
  - PRURITUS [None]
  - SKIN HYPERPIGMENTATION [None]
  - LICHENOID KERATOSIS [None]
